FAERS Safety Report 11377264 (Version 1)
Quarter: 2015Q3

REPORT INFORMATION
  Report Type: Spontaneous
  Country: US (occurrence: US)
  Receive Date: 20150811
  Receipt Date: 20150811
  Transmission Date: 20151125
  Serious: No
  Sender: FDA-Public Use
  Company Number: US-ELI_LILLY_AND_COMPANY-US200810007703

PATIENT
  Age: 73 Year
  Sex: Female
  Weight: 79.37 kg

DRUGS (2)
  1. HUMALOG [Suspect]
     Active Substance: INSULIN LISPRO
     Dosage: UNK, UNK
  2. HUMULIN N [Suspect]
     Active Substance: INSULIN HUMAN

REACTIONS (1)
  - Drug dispensing error [Unknown]
